FAERS Safety Report 6809920-1 (Version None)
Quarter: 2010Q2

REPORT INFORMATION
  Report Type: 
  Country: None (occurrence: None)
  Receive Date: 20100630
  Receipt Date: 20100625
  Transmission Date: 20101027
  Serious: Yes (Death)
  Sender: FDA-Public Use
  Company Number: US-GILEAD-2010-0030074

PATIENT
  Sex: Male

DRUGS (20)
  1. LETAIRIS [Suspect]
     Indication: PULMONARY ARTERIAL HYPERTENSION
     Route: 048
     Dates: start: 20080911, end: 20100624
  2. PLAVIX [Concomitant]
  3. ASPIRIN [Concomitant]
  4. TYVASO [Concomitant]
  5. ADCIRCA [Concomitant]
  6. SPIRONOLACTONE [Concomitant]
  7. FUROSEMIDE [Concomitant]
  8. METOLAZONE [Concomitant]
  9. METHADONE HCL [Concomitant]
  10. LIPITOR [Concomitant]
  11. SPIRIVA [Concomitant]
  12. MAXAIR [Concomitant]
  13. PREDNISONE [Concomitant]
  14. OMEPRAZOLE [Concomitant]
  15. NEXIUM [Concomitant]
  16. LEVOTHYROXINE SODIUM [Concomitant]
  17. ALLOPURINOL [Concomitant]
  18. MORPHINE SULFATE [Concomitant]
  19. KLOR-CON [Concomitant]
  20. VITAMIN C [Concomitant]

REACTIONS (1)
  - DEATH [None]
